FAERS Safety Report 10869828 (Version 1)
Quarter: 2015Q1

REPORT INFORMATION
  Report Type: Spontaneous
  Country: US (occurrence: None)
  Receive Date: 20150219
  Receipt Date: 20150219
  Transmission Date: 20150721
  Serious: Yes (Death, Hospitalization)
  Sender: FDA-Public Use
  Company Number: 2015/011

PATIENT
  Age: 84 Year
  Sex: Female

DRUGS (3)
  1. POLYETHYLENE GLYCOL [Concomitant]
     Active Substance: POLYETHYLENE GLYCOLS
  2. CITALOPRAM [Suspect]
     Active Substance: CITALOPRAM HYDROBROMIDE
  3. MEMANTINE [Suspect]
     Active Substance: MEMANTINE
     Indication: DEMENTIA

REACTIONS (7)
  - Seizure [None]
  - Mental status changes [None]
  - Confusional state [None]
  - Lethargy [None]
  - Heart rate increased [None]
  - Fall [None]
  - Agitation [None]
